FAERS Safety Report 10418789 (Version 1)
Quarter: 2014Q2

REPORT INFORMATION
  Report Type: Report from Study
  Country: US (occurrence: None)
  Receive Date: 20140627
  Receipt Date: 20140627
  Transmission Date: 20141212
  Serious: No
  Sender: FDA-Public Use
  Company Number: CABO-14004246

PATIENT
  Age: 49 Year
  Sex: Male
  Weight: 75 kg

DRUGS (8)
  1. COMETRIQ (CABOZANTINIB) CAPSULE [Suspect]
     Indication: THYROID CANCER
     Route: 048
     Dates: start: 20140222, end: 20140501
  2. TIZANIDINE [Concomitant]
  3. PERCOCET (OXYCODONE HYDROCHLORIDE, PARACETAMOL) [Concomitant]
  4. LYRICA (PREGABALIN) [Concomitant]
  5. SYNTHROID (LEVOTHYROXINE SODIUM) [Concomitant]
  6. MORPHINE [Concomitant]
  7. FENTANYL [Concomitant]
  8. BACLOFEN [Concomitant]

REACTIONS (1)
  - Blood count abnormal [None]
